FAERS Safety Report 12243894 (Version 3)
Quarter: 2016Q2

REPORT INFORMATION
  Report Type: Spontaneous
  Country: FI (occurrence: FI)
  Receive Date: 20160406
  Receipt Date: 20160429
  Transmission Date: 20160815
  Serious: Yes (Hospitalization)
  Sender: FDA-Public Use
  Company Number: FI-ABBVIE-16P-055-1596509-00

PATIENT
  Sex: Male
  Weight: 92 kg

DRUGS (11)
  1. THYROXIN [Concomitant]
     Active Substance: LEVOTHYROXINE
     Indication: PRODUCT USED FOR UNKNOWN INDICATION
  2. RIBAVIRIN. [Concomitant]
     Active Substance: RIBAVIRIN
     Indication: PRODUCT USED FOR UNKNOWN INDICATION
  3. VIEKIRAX [Suspect]
     Active Substance: OMBITASVIR\PARITAPREVIR\RITONAVIR
     Indication: HEPATITIS C
     Route: 048
     Dates: start: 20160315, end: 20160330
  4. EXVIERA [Suspect]
     Active Substance: DASABUVIR
     Indication: HEPATITIS C
     Route: 048
     Dates: start: 20160315, end: 20160330
  5. KLOTRIPTYL [Concomitant]
     Indication: PRODUCT USED FOR UNKNOWN INDICATION
     Dosage: 12.5/5 MG
     Route: 065
  6. SELOCOMP [Concomitant]
     Indication: PRODUCT USED FOR UNKNOWN INDICATION
     Dosage: 95/12.5MG
  7. THYROXIN [Concomitant]
     Active Substance: LEVOTHYROXINE
     Indication: PRODUCT USED FOR UNKNOWN INDICATION
  8. KLOTRIPTYL [Concomitant]
     Indication: PRODUCT USED FOR UNKNOWN INDICATION
     Dosage: 12.5/5 MG
  9. SELOCOMP ZOC [Concomitant]
     Active Substance: HYDROCHLOROTHIAZIDE\METOPROLOL SUCCINATE
     Indication: PRODUCT USED FOR UNKNOWN INDICATION
     Dosage: 95/12.5MG
  10. KALEORID [Concomitant]
     Active Substance: POTASSIUM CHLORIDE
     Indication: PRODUCT USED FOR UNKNOWN INDICATION
  11. KALEORID [Concomitant]
     Active Substance: POTASSIUM CHLORIDE
     Indication: PRODUCT USED FOR UNKNOWN INDICATION

REACTIONS (20)
  - Pulmonary oedema [Recovered/Resolved]
  - Chronic obstructive pulmonary disease [Unknown]
  - Swelling [Recovering/Resolving]
  - Haemoptysis [Recovering/Resolving]
  - Malaise [Recovering/Resolving]
  - Hypoalbuminaemia [Recovering/Resolving]
  - Hepatic failure [Recovered/Resolved]
  - Condition aggravated [Recovering/Resolving]
  - Infection [Recovered/Resolved]
  - Hepatic cirrhosis [Recovering/Resolving]
  - Acidosis [Recovering/Resolving]
  - Jaundice [Recovering/Resolving]
  - Pleural effusion [Recovering/Resolving]
  - C-reactive protein increased [Recovering/Resolving]
  - Pulmonary hypertension [Recovered/Resolved]
  - Cardiac failure [Recovered/Resolved]
  - Hyponatraemia [Recovering/Resolving]
  - Urine sodium decreased [Recovering/Resolving]
  - Pyrexia [Recovered/Resolved]
  - Blood bilirubin increased [Recovering/Resolving]

NARRATIVE: CASE EVENT DATE: 2016
